FAERS Safety Report 5073080-0 (Version None)
Quarter: 2006Q3

REPORT INFORMATION
  Report Type: 
  Country: None (occurrence: None)
  Receive Date: 20060802
  Receipt Date: 20060726
  Transmission Date: 20061208
  Serious: Yes (Death)
  Sender: FDA-Public Use
  Company Number: 163-21880-06070880

PATIENT
  Age: 64 Year
  Sex: Female

DRUGS (1)
  1. REVLIMID [Suspect]
     Dosage: 5-10MG, 1 IN 1 D, ORAL
     Route: 048
     Dates: start: 20060321, end: 20060101

REACTIONS (1)
  - DEATH [None]
